FAERS Safety Report 21686429 (Version 1)
Quarter: 2022Q4

REPORT INFORMATION
  Report Type: Report from Study
  Country: FR (occurrence: FR)
  Receive Date: 20221206
  Receipt Date: 20221206
  Transmission Date: 20230112
  Serious: No
  Sender: FDA-Public Use
  Company Number: FR-GBT-017612

PATIENT
  Age: 14 Year
  Sex: Male

DRUGS (1)
  1. VOXELOTOR [Suspect]
     Active Substance: VOXELOTOR
     Indication: Haemolytic anaemia
     Route: 048
     Dates: start: 20220729, end: 20221017

REACTIONS (3)
  - Disease progression [Unknown]
  - Therapeutic response decreased [Unknown]
  - Therapy cessation [Unknown]

NARRATIVE: CASE EVENT DATE: 20220101
